FAERS Safety Report 5486972-5 (Version None)
Quarter: 2007Q4

REPORT INFORMATION
  Report Type: 
  Country: None (occurrence: None)
  Receive Date: 20071012
  Receipt Date: 20071012
  Transmission Date: 20080405
  Serious: Yes (Other)
  Sender: FDA-Public Use
  Company Number: None

PATIENT
  Age: 24 Year
  Sex: Female
  Weight: 70.3075 kg

DRUGS (2)
  1. CHANTIX [Suspect]
     Indication: SMOKING CESSATION THERAPY
     Dosage: .5 3 DAYS PO
     Route: 048
     Dates: start: 20071001, end: 20071007
  2. CHANTIX [Suspect]
     Dosage: 1.0 4 DAYS PO
     Route: 048

REACTIONS (2)
  - ANXIETY [None]
  - PANIC REACTION [None]
